FAERS Safety Report 8341098-8 (Version None)
Quarter: 2012Q2

REPORT INFORMATION
  Report Type: 
  Country: None (occurrence: None)
  Receive Date: 20120507
  Receipt Date: 20120427
  Transmission Date: 20120825
  Serious: Yes (Hospitalization, Congenital Anomaly)
  Sender: FDA-Public Use
  Company Number: US-GLAXOSMITHKLINE-A0951260A

PATIENT
  Sex: Female

DRUGS (4)
  1. VAGINAL CREAM [Concomitant]
  2. MACROBID [Concomitant]
  3. PAXIL [Suspect]
     Indication: DEPRESSION
     Dosage: 20MG PER DAY
     Route: 064
     Dates: start: 19970101, end: 20060101
  4. HEMOCYTE [Concomitant]

REACTIONS (4)
  - ATRIAL SEPTAL DEFECT [None]
  - PULMONARY VALVE STENOSIS [None]
  - FOETAL EXPOSURE DURING PREGNANCY [None]
  - FALLOT'S TETRALOGY [None]
